FAERS Safety Report 9166721 (Version 3)
Quarter: 2013Q2

REPORT INFORMATION
  Report Type: Report from Study
  Country: US (occurrence: US)
  Receive Date: 20130315
  Receipt Date: 20130506
  Transmission Date: 20140414
  Serious: Yes (Other)
  Sender: FDA-Public Use
  Company Number: US-ABBOTT-13P-163-1060951-00

PATIENT
  Age: 64 Year
  Sex: Female

DRUGS (17)
  1. HUMIRA [Suspect]
     Indication: RHEUMATOID ARTHRITIS
     Dates: start: 20121020
  2. RHEUMATREX [Concomitant]
     Indication: RHEUMATOID ARTHRITIS
     Route: 048
  3. RHEUMATREX [Concomitant]
     Dates: start: 20130424
  4. FOLVITE [Concomitant]
     Indication: VITAMIN SUPPLEMENTATION
     Route: 048
     Dates: end: 20130424
  5. FOLVITE [Concomitant]
     Dates: start: 20130424
  6. WELLCOVORIN [Concomitant]
     Indication: RHEUMATOID ARTHRITIS
     Route: 048
     Dates: end: 20130424
  7. NORMODYNE [Concomitant]
     Indication: BLOOD PRESSURE
     Route: 048
  8. ZESTRIL [Concomitant]
     Indication: BLOOD PRESSURE
     Route: 048
  9. ZOCOR [Concomitant]
     Indication: BLOOD CHOLESTEROL
     Route: 048
  10. LUTEIN [Concomitant]
     Indication: EYE DISORDER
     Route: 048
  11. VITAMIN B12 [Concomitant]
     Indication: PRODUCT USED FOR UNKNOWN INDICATION
  12. CALTRATE WITH VITAMIN D [Concomitant]
     Indication: PRODUCT USED FOR UNKNOWN INDICATION
     Route: 048
  13. CENTRUM SILVER [Concomitant]
     Indication: PRODUCT USED FOR UNKNOWN INDICATION
  14. OMEGA-3 FATTY ACIDS [Concomitant]
     Indication: INFLAMMATION
     Route: 048
  15. MAGNESIUM OXIDE [Concomitant]
     Indication: PRODUCT USED FOR UNKNOWN INDICATION
     Route: 048
  16. HYDRODIURIL [Concomitant]
     Indication: PRODUCT USED FOR UNKNOWN INDICATION
     Route: 048
  17. METROCREAM [Concomitant]
     Indication: PRODUCT USED FOR UNKNOWN INDICATION
     Route: 061

REACTIONS (15)
  - Urinary tract obstruction [Unknown]
  - Systolic hypertension [Unknown]
  - Nasal inflammation [Unknown]
  - Sneezing [Unknown]
  - Lacrimation increased [Unknown]
  - Nasal congestion [Unknown]
  - Eyelid oedema [Unknown]
  - Wrong technique in drug usage process [Unknown]
  - Injection site macule [Unknown]
  - Injection site bruising [Unknown]
  - Injection site haemorrhage [Unknown]
  - Injection site pain [Unknown]
  - Upper-airway cough syndrome [Unknown]
  - Inner ear inflammation [Unknown]
  - Acute sinusitis [Unknown]
